FAERS Safety Report 8272015-7 (Version None)
Quarter: 2012Q2

REPORT INFORMATION
  Report Type: 
  Country: None (occurrence: None)
  Receive Date: 20120410
  Receipt Date: 20120328
  Transmission Date: 20120825
  Serious: Yes (Life-Threatening, Hospitalization)
  Sender: FDA-Public Use
  Company Number: AU-MYLANLABS-2012S1006901

PATIENT
  Age: 36 Year
  Sex: Female

DRUGS (4)
  1. CLOZAPINE [Suspect]
     Indication: SCHIZOPHRENIA
     Dosage: 12.5MG DAILY, INCREASED BY STANDARD PROTOCOL TO 150MG IN THE MORNING + 300MG AT NIGHT BY DAY 14
     Route: 065
  2. LITHIUM CARBONATE [Concomitant]
     Indication: SCHIZOPHRENIA
     Route: 065
  3. VALPROIC ACID [Concomitant]
     Indication: SCHIZOPHRENIA
     Route: 065
  4. QUETIAPINE [Concomitant]
     Indication: SCHIZOPHRENIA
     Route: 065

REACTIONS (9)
  - TOXICITY TO VARIOUS AGENTS [None]
  - PULMONARY OEDEMA [None]
  - MULTI-ORGAN FAILURE [None]
  - PLEURAL EFFUSION [None]
  - MALAISE [None]
  - METABOLIC ACIDOSIS [None]
  - PYREXIA [None]
  - HYPOTENSION [None]
  - HEADACHE [None]
